FAERS Safety Report 5332827-6 (Version None)
Quarter: 2007Q2

REPORT INFORMATION
  Report Type: 
  Country: None (occurrence: None)
  Receive Date: 20070521
  Receipt Date: 20070511
  Transmission Date: 20071010
  Serious: Yes (Other)
  Sender: FDA-Public Use
  Company Number: 2007SP009230

PATIENT
  Age: 59 Year
  Sex: Female

DRUGS (7)
  1. INTRON A [Suspect]
     Indication: MULTIPLE MYELOMA
     Dosage: 11 IU;QW;SC
     Route: 058
     Dates: end: 20060615
  2. OSTAC (CLODRONATE DISODIUM) [Suspect]
     Indication: MULTIPLE MYELOMA
     Dosage: ;QD;PO
     Route: 048
     Dates: start: 19970630, end: 20060615
  3. KENTERA [Concomitant]
  4. MINIRIN [Concomitant]
  5. ESTRADERM [Concomitant]
  6. GEAVIR [Concomitant]
  7. SANDOSTATIN LAR [Concomitant]

REACTIONS (2)
  - ARTHRALGIA [None]
  - OSTEONECROSIS [None]
